FAERS Safety Report 7810788-5 (Version None)
Quarter: 2011Q4

REPORT INFORMATION
  Report Type: 
  Country: None (occurrence: None)
  Receive Date: 20111011
  Receipt Date: 20110929
  Transmission Date: 20120403
  Serious: Yes (Other)
  Sender: FDA-Public Use
  Company Number: 1000024509

PATIENT
  Age: 73 Year
  Sex: Female

DRUGS (13)
  1. MEMANTINE [Suspect]
     Indication: HALLUCINATION
     Dosage: 2.5 MG (2.5 MG, 1 IN 1 D), ORAL
     Route: 048
     Dates: start: 20110915
  2. MEMANTINE [Suspect]
     Indication: HALLUCINATION
     Dosage: 2.5 MG (2.5 MG, 1IN 1 D), ORAL
     Route: 048
     Dates: start: 20110715, end: 20110721
  3. MEMANTINE [Suspect]
     Indication: HALLUCINATION
     Dosage: 2.5 MG (2.5 MG, 1IN 1 D), ORAL
     Route: 048
     Dates: start: 20110701, end: 20110707
  4. MEMANTINE [Suspect]
     Indication: HALLUCINATION
     Dosage: 2.5 MG (2.5 MG, 1IN 1 D), ORAL
     Route: 048
     Dates: start: 20110708, end: 20110714
  5. ARICEPT [Concomitant]
  6. ALMARL (AROTINOLOL HYDROCHLORIDE) [Concomitant]
  7. UNISIA HD (CANDESARTAN, AMLODIPINE) (CANDESARTAN, AMLODIPINE) [Concomitant]
  8. NORVASC [Concomitant]
  9. YOKUKAN-SAN (YOKUKAN-SAN) [Concomitant]
  10. CELECOXIB [Concomitant]
  11. ALDOMET [Concomitant]
  12. MEMANTINE [Suspect]
     Indication: HALLUCINATION
     Dosage: 10 MG (10 MG, 1 IN 1 D), ORAL
     Route: 048
     Dates: start: 20110722, end: 20110818
  13. RESMIT (MEDAZEPAM) [Concomitant]

REACTIONS (3)
  - CONDITION AGGRAVATED [None]
  - MOTOR DYSFUNCTION [None]
  - GAIT DISTURBANCE [None]
